FAERS Safety Report 4285401-7 (Version None)
Quarter: 2004Q1

REPORT INFORMATION
  Report Type: 
  Country: None (occurrence: None)
  Receive Date: 20040202
  Receipt Date: 20040128
  Transmission Date: 20041129
  Serious: Yes (Hospitalization)
  Sender: FDA-Public Use
  Company Number: 2004-01-1843

PATIENT
  Age: 62 Year
  Sex: Male
  Weight: 81 kg

DRUGS (19)
  1. CLARINEX [Suspect]
     Indication: HYPERSENSITIVITY
     Dosage: 10MG TID ORAL
     Route: 048
     Dates: start: 20020417, end: 20020417
  2. TEGRETOL [Concomitant]
  3. FORTECORTIN [Concomitant]
  4. DORMICUM ^ROCHE^ [Concomitant]
  5. HYPNOMIDATE [Concomitant]
  6. VALIUM [Concomitant]
  7. PHENYTOIN SODIUM [Concomitant]
  8. NOVALGIN [Concomitant]
  9. DEXAMETHASONE [Concomitant]
  10. INNOHEP (LOW MW HEPARIN) [Concomitant]
  11. BRONCHORETARD [Concomitant]
  12. TRENTAL [Concomitant]
  13. THEOPHYLLINE [Concomitant]
  14. ZENTROPIL [Concomitant]
  15. NYSTATIN [Concomitant]
  16. PANTOZOL (PANTOPRAZOLE) [Concomitant]
  17. LIMPTAR [Concomitant]
  18. TIMONIL [Concomitant]
  19. ASPARTATE MAGNESIUM [Concomitant]

REACTIONS (1)
  - STEVENS-JOHNSON SYNDROME [None]
